FAERS Safety Report 4672678-9 (Version None)
Quarter: 2005Q2

REPORT INFORMATION
  Report Type: 
  Country: None (occurrence: None)
  Receive Date: 20050524
  Receipt Date: 20050420
  Transmission Date: 20051028
  Serious: Yes (Death)
  Sender: FDA-Public Use
  Company Number: US-BRISTOL-MYERS SQUIBB COMPANY-12941555

PATIENT
  Age: 86 Year
  Sex: Male

DRUGS (11)
  1. MEGACE [Suspect]
     Indication: INCREASED APPETITE
     Route: 048
  2. PHOSLO [Concomitant]
  3. TOPROL-XL [Concomitant]
  4. LIPITOR [Concomitant]
  5. PLAVIX [Concomitant]
  6. COZAAR [Concomitant]
  7. SINEMET [Concomitant]
  8. AMBIEN [Concomitant]
  9. NITROGLYCERIN [Concomitant]
  10. NEPHROCAPS [Concomitant]
  11. COLACE [Concomitant]

REACTIONS (2)
  - CARDIAC ARREST [None]
  - CORONARY ARTERY DISEASE [None]
